FAERS Safety Report 18578269 (Version 1)
Quarter: 2020Q4

REPORT INFORMATION
  Report Type: Spontaneous
  Country: US (occurrence: US)
  Receive Date: 20201204
  Receipt Date: 20201204
  Transmission Date: 20210114
  Serious: No
  Sender: FDA-Public Use
  Company Number: US-ENCUBE-000016

PATIENT
  Sex: Male

DRUGS (1)
  1. PERMETHRIN 5% CREAM [Suspect]
     Active Substance: PERMETHRIN
     Indication: ACARODERMATITIS
     Route: 061
     Dates: start: 20201026

REACTIONS (1)
  - Pruritus [Not Recovered/Not Resolved]

NARRATIVE: CASE EVENT DATE: 20201027
